FAERS Safety Report 8825241 (Version 3)
Quarter: 2013Q3

REPORT INFORMATION
  Report Type: Report from Study
  Country: JP (occurrence: JP)
  Receive Date: 20121004
  Receipt Date: 20130806
  Transmission Date: 20140515
  Serious: Yes (Hospitalization)
  Sender: FDA-Public Use
  Company Number: JP-VERTEX PHARMACEUTICAL INC.-AE-2012-007729

PATIENT
  Age: 56 Year
  Sex: Male

DRUGS (11)
  1. VX-950 (TELAPREVIR) [Suspect]
     Indication: CHRONIC HEPATITIS C
     Dosage: 2250 MG, QD
     Route: 048
     Dates: start: 20120327, end: 20120409
  2. REBETOL [Concomitant]
     Dosage: 800 MG, QD
     Route: 048
     Dates: start: 20120327, end: 20120409
  3. REBETOL [Concomitant]
     Dosage: 200 MG, QD
     Route: 048
     Dates: start: 20120501
  4. PEGINTERFERON ALFA-2B [Concomitant]
     Dosage: 1.5 ?G/KG, QW
     Route: 058
     Dates: start: 20120327, end: 20120410
  5. PEGINTERFERON ALFA-2B [Concomitant]
     Dosage: 50 ?G, QW
     Route: 058
     Dates: start: 20120417, end: 20120501
  6. PEGINTERFERON ALFA-2B [Concomitant]
     Dosage: 80 ?G, QW
     Route: 058
     Dates: start: 20120508
  7. BASEN [Concomitant]
     Dosage: 0.6 MG, QD
     Route: 048
     Dates: end: 20120419
  8. TAKEPRON [Concomitant]
     Dosage: 15 MG, QD
     Route: 048
     Dates: end: 20120419
  9. NORVASC [Concomitant]
     Dosage: 5 MG, QD
     Route: 048
     Dates: end: 20120419
  10. AMARYL [Concomitant]
     Dosage: 1 MG, QD
     Route: 048
     Dates: end: 20120419
  11. NU-LOTAN [Concomitant]
     Dosage: 50 MG, QD
     Route: 048
     Dates: end: 20120419

REACTIONS (2)
  - Haematuria [Recovered/Resolved]
  - Urinary tract infection [Recovered/Resolved]
